FAERS Safety Report 5799391-9 (Version None)
Quarter: 2008Q3

REPORT INFORMATION
  Report Type: 
  Country: None (occurrence: None)
  Receive Date: 20080703
  Receipt Date: 20080626
  Transmission Date: 20090109
  Serious: Yes (Other)
  Sender: FDA-Public Use
  Company Number: US-PFIZER INC-2008054063

PATIENT
  Sex: Male

DRUGS (4)
  1. GEODON [Suspect]
  2. VISTARIL CAP [Interacting]
  3. QUINAPRIL [Interacting]
  4. ALL OTHER NON-THERAPEUTIC PRODUCTS [Interacting]

REACTIONS (4)
  - DRUG INTERACTION [None]
  - IMPATIENCE [None]
  - LETHARGY [None]
  - MANIA [None]
